FAERS Safety Report 7434062-4 (Version None)
Quarter: 2011Q2

REPORT INFORMATION
  Report Type: 
  Country: None (occurrence: None)
  Receive Date: 20110425
  Receipt Date: 20110418
  Transmission Date: 20111010
  Serious: Yes (Other)
  Sender: FDA-Public Use
  Company Number: US-ASTELLAS-2011US001632

PATIENT

DRUGS (1)
  1. PROGRAF [Suspect]
     Indication: LUNG TRANSPLANT
     Dosage: 3.5 MG, BID
     Route: 048
     Dates: start: 20071014

REACTIONS (3)
  - THROMBOSIS [None]
  - OFF LABEL USE [None]
  - PULMONARY EMBOLISM [None]
